FAERS Safety Report 13427055 (Version 2)
Quarter: 2017Q2

REPORT INFORMATION
  Report Type: Spontaneous
  Country: US (occurrence: US)
  Receive Date: 20170411
  Receipt Date: 20170419
  Transmission Date: 20170830
  Serious: Yes (Other)
  Sender: FDA-Public Use
  Company Number: US-ASTELLAS-2017US008887

PATIENT
  Sex: Male

DRUGS (1)
  1. XTANDI [Suspect]
     Active Substance: ENZALUTAMIDE
     Indication: PROSTATE CANCER
     Route: 065

REACTIONS (9)
  - Fatigue [Unknown]
  - Skin discolouration [Unknown]
  - Dizziness [Unknown]
  - Loss of consciousness [Unknown]
  - Nausea [Unknown]
  - Apparent death [Unknown]
  - Fall [Unknown]
  - Rash generalised [Unknown]
  - Weight decreased [Unknown]
